FAERS Safety Report 12859448 (Version 1)
Quarter: 2016Q4

REPORT INFORMATION
  Report Type: Spontaneous
  Country: GB (occurrence: GB)
  Receive Date: 20161018
  Receipt Date: 20161018
  Transmission Date: 20170207
  Serious: Yes (Disabling, Other)
  Sender: FDA-Public Use
  Company Number: GB-PFIZER INC-2016479464

PATIENT
  Age: 69 Year
  Sex: Female
  Weight: 57.6 kg

DRUGS (5)
  1. LIPITOR [Suspect]
     Active Substance: ATORVASTATIN CALCIUM
     Indication: BLOOD CHOLESTEROL INCREASED
     Dosage: UNK
     Route: 048
     Dates: start: 201306, end: 201307
  2. LATANOPROST. [Concomitant]
     Active Substance: LATANOPROST
     Dosage: UNK
  3. CANDESARTAN CILEXETIL. [Concomitant]
     Active Substance: CANDESARTAN CILEXETIL
     Dosage: UNK
  4. CRESTOR [Suspect]
     Active Substance: ROSUVASTATIN CALCIUM
     Indication: BLOOD CHOLESTEROL INCREASED
     Dosage: UNK
     Route: 048
     Dates: start: 20151122, end: 20160122
  5. EZETROL [Suspect]
     Active Substance: EZETIMIBE
     Indication: BLOOD CHOLESTEROL INCREASED
     Dosage: 10 MG, 1X/DAY
     Route: 048
     Dates: start: 20160415, end: 20160626

REACTIONS (5)
  - Myalgia [Recovering/Resolving]
  - Arthralgia [Not Recovered/Not Resolved]
  - Muscle spasms [Recovering/Resolving]
  - Insomnia [Recovering/Resolving]
  - Hot flush [Recovering/Resolving]
